FAERS Safety Report 11213574 (Version 2)
Quarter: 2015Q3

REPORT INFORMATION
  Report Type: Spontaneous
  Country: US (occurrence: US)
  Receive Date: 20150623
  Receipt Date: 20150831
  Transmission Date: 20151125
  Serious: Yes (Hospitalization)
  Sender: FDA-Public Use
  Company Number: US-PFIZER INC-2015205762

PATIENT
  Age: 44 Year
  Sex: Female
  Weight: 82 kg

DRUGS (1)
  1. LYRICA [Suspect]
     Active Substance: PREGABALIN
     Indication: NEURALGIA
     Dosage: 150 MG, 2X/DAY
     Dates: start: 201408, end: 20150520

REACTIONS (7)
  - Gait disturbance [Unknown]
  - Hypoaesthesia [Unknown]
  - Back disorder [Unknown]
  - Pain in extremity [Unknown]
  - Limb discomfort [Not Recovered/Not Resolved]
  - Nervous system disorder [Not Recovered/Not Resolved]
  - Nerve injury [Unknown]

NARRATIVE: CASE EVENT DATE: 20150504
